FAERS Safety Report 14924356 (Version 1)
Quarter: 2018Q2

REPORT INFORMATION
  Report Type: Spontaneous
  Country: ES (occurrence: ES)
  Receive Date: 20180522
  Receipt Date: 20180522
  Transmission Date: 20180711
  Serious: Yes (Death, Other)
  Sender: FDA-Public Use
  Company Number: ES-PFM-2018-05459

PATIENT

DRUGS (3)
  1. CARBOPLATINO [Suspect]
     Active Substance: CARBOPLATIN
     Indication: BREAST CANCER METASTATIC
     Dosage: INITIAL DOSAGE UNKNOWN; DOSING FREQUENCY LATER CHANGED TO WEEKLY SCHEDULE
     Route: 065
  2. VINORELBINE TARTRATE. [Suspect]
     Active Substance: VINORELBINE TARTRATE
     Indication: BREAST CANCER METASTATIC
     Dosage: UNK
     Route: 065
  3. ERIBULIN [Suspect]
     Active Substance: ERIBULIN
     Indication: BREAST CANCER METASTATIC
     Dosage: 1.23 MG/M2 DAYS 1 AND 8 EVERY 21 DAYS (SEVEN CYCLES)
     Route: 065

REACTIONS (3)
  - Haematotoxicity [Unknown]
  - Shock [Fatal]
  - Neutropenia [Recovered/Resolved]
